FAERS Safety Report 7970773-X (Version None)
Quarter: 2011Q4

REPORT INFORMATION
  Report Type: 
  Country: None (occurrence: None)
  Receive Date: 20111212
  Receipt Date: 20111202
  Transmission Date: 20120403
  Serious: Yes (Hospitalization, Other)
  Sender: FDA-Public Use
  Company Number: PHHY2011JP103661

PATIENT
  Age: 61 Year
  Sex: Female

DRUGS (6)
  1. CYCLOSPORINE [Suspect]
     Indication: RHEUMATOID ARTHRITIS
  2. AZATHIOPRINE [Concomitant]
     Indication: RHEUMATOID ARTHRITIS
  3. MIZORIBINE [Concomitant]
     Indication: RHEUMATOID ARTHRITIS
     Dosage: UNK UKN, UNK
  4. METHOTREXATE [Concomitant]
     Indication: RHEUMATOID ARTHRITIS
  5. BUCILLAMINE [Concomitant]
     Indication: RHEUMATOID ARTHRITIS
  6. PREDNISOLONE [Concomitant]
     Indication: RHEUMATOID ARTHRITIS
     Dosage: MORE THAN 14 MG/DAY

REACTIONS (9)
  - DEPRESSED LEVEL OF CONSCIOUSNESS [None]
  - PYREXIA [None]
  - RHEUMATOID VASCULITIS [None]
  - VASCULITIS [None]
  - SENSORY DISTURBANCE [None]
  - THERAPEUTIC RESPONSE DECREASED [None]
  - PERONEAL NERVE PALSY [None]
  - HYPOKINESIA [None]
  - POLYNEUROPATHY [None]
